FAERS Safety Report 13244866 (Version 7)
Quarter: 2017Q2

REPORT INFORMATION
  Report Type: Spontaneous
  Country: FR (occurrence: FR)
  Receive Date: 20170216
  Receipt Date: 20170606
  Transmission Date: 20170830
  Serious: Yes (Life-Threatening, Hospitalization, Other)
  Sender: FDA-Public Use
  Company Number: PHHY2017FR019514

PATIENT
  Age: 13 Year
  Sex: Female
  Weight: 60 kg

DRUGS (2)
  1. OMEPRAZOLE SANDOZ [Suspect]
     Active Substance: OMEPRAZOLE
     Indication: PRODUCT USED FOR UNKNOWN INDICATION
     Route: 048
     Dates: start: 20170110, end: 20170117
  2. IBUPROFEN SANDOZ [Suspect]
     Active Substance: IBUPROFEN
     Indication: PAIN
     Dosage: 1 DF, BID
     Route: 048
     Dates: start: 20170110, end: 20170116

REACTIONS (10)
  - Cholestasis [Recovering/Resolving]
  - Hyponatraemia [Unknown]
  - Hypochloraemia [Unknown]
  - Off label use [Unknown]
  - Lymphopenia [Recovered/Resolved]
  - Liver injury [Recovering/Resolving]
  - Drug administered to patient of inappropriate age [Unknown]
  - Hepatitis [Recovering/Resolving]
  - Stevens-Johnson syndrome [Recovered/Resolved]
  - Hypophosphataemia [Unknown]

NARRATIVE: CASE EVENT DATE: 20170118
